FAERS Safety Report 7682020-7 (Version None)
Quarter: 2011Q3

REPORT INFORMATION
  Report Type: 
  Country: None (occurrence: None)
  Receive Date: 20110809
  Receipt Date: 20110726
  Transmission Date: 20111222
  Serious: Yes (Congenital Anomaly)
  Sender: FDA-Public Use
  Company Number: B0737135A

PATIENT
  Sex: Male

DRUGS (5)
  1. ENTACAPONE [Suspect]
     Indication: PARKINSONISM
     Dosage: TRANSPLACENTARY
     Route: 064
  2. SELEGILLINE (SELEGILLINE) (FORMULATION UNKOWN) [Suspect]
     Indication: PARKINSONISM
  3. CARBIDOPA + LEVODOPA (CARBIDOPA + LEVODOPA) (FORMULATION UNKNOWN) [Suspect]
     Indication: PARKINSONISM
  4. ROPINIROLE HYDROCHLORIDE (ROPINIROLE HCI) (FORMULATION UNKNOWN) (GENER [Suspect]
     Indication: PARKINSONISM
     Dosage: TRANSPLACENTARY
     Route: 064
  5. CARBIDOPA + LEVODOPA (CARBIDOPA + LEVODOPA) (FORMULATION UNKNOWN) [Suspect]
     Indication: PARKINSONISM

REACTIONS (3)
  - VENTRICULAR SEPTAL DEFECT [None]
  - MATERNAL DRUGS AFFECTING FOETUS [None]
  - CAESAREAN SECTION [None]
